FAERS Safety Report 7096273-X (Version None)
Quarter: 2010Q4

REPORT INFORMATION
  Report Type: 
  Country: None (occurrence: None)
  Receive Date: 20101111
  Receipt Date: 20101012
  Transmission Date: 20110411
  Serious: Yes (Other)
  Sender: FDA-Public Use
  Company Number: US-BAXTER-2008BH001346

PATIENT
  Age: 37 Year
  Sex: Male

DRUGS (1)
  1. HEPARIN SODIUM INJECTION [Suspect]
     Indication: PROPHYLAXIS
     Route: 065
     Dates: start: 20071206, end: 20080101

REACTIONS (3)
  - DEMYELINATING POLYNEUROPATHY [None]
  - DYSKINESIA [None]
  - MYALGIA [None]
